FAERS Safety Report 4450654-9 (Version None)
Quarter: 2004Q3

REPORT INFORMATION
  Report Type: 
  Country: None (occurrence: None)
  Receive Date: 20040914
  Receipt Date: 20040901
  Transmission Date: 20050211
  Serious: Yes (Hospitalization)
  Sender: FDA-Public Use
  Company Number: 2004231233US

PATIENT
  Age: 48 Year
  Sex: Male

DRUGS (2)
  1. CAMPTOSAR [Suspect]
     Indication: ANAPLASTIC ASTROCYTOMA
     Dosage: 154 MG, WEEKLY X4 WEEKS, CYCLE 6, IV
     Route: 042
     Dates: start: 20040714, end: 20040804
  2. COMPARATOR-THALIDOMIDE (THALIDOMIDE) CAPSULE [Suspect]
     Indication: ANAPLASTIC ASTROCYTOMA
     Dosage: 400 MG, QD, ORAL
     Route: 048

REACTIONS (2)
  - CONVULSION [None]
  - DEPRESSED LEVEL OF CONSCIOUSNESS [None]
